FAERS Safety Report 5705466-2 (Version None)
Quarter: 2008Q2

REPORT INFORMATION
  Report Type: 
  Country: None (occurrence: None)
  Receive Date: 20080415
  Receipt Date: 20080415
  Transmission Date: 20081010
  Serious: No
  Sender: FDA-Public Use
  Company Number: None

PATIENT
  Age: 61 Year
  Sex: Male
  Weight: 81.6475 kg

DRUGS (3)
  1. HEPARIN [Suspect]
     Indication: PHOTOPHERESIS
     Dosage: 10,000 UNITS ONCE
     Dates: start: 20080130, end: 20080130
  2. HEPARIN [Suspect]
     Indication: PHOTOPHERESIS
     Dosage: 10,000 UNITS ONCE
     Dates: start: 20080213, end: 20080213
  3. ACD-A ANTICOAGULANT SOLUTION [Concomitant]

REACTIONS (8)
  - BLOOD PRESSURE IMMEASURABLE [None]
  - EYE MOVEMENT DISORDER [None]
  - HEART RATE INCREASED [None]
  - HYPOVENTILATION [None]
  - INCONTINENCE [None]
  - MUSCULOSKELETAL STIFFNESS [None]
  - PHARMACEUTICAL PRODUCT COMPLAINT [None]
  - UNRESPONSIVE TO STIMULI [None]
